FAERS Safety Report 24164696 (Version 1)
Quarter: 2024Q3

REPORT INFORMATION
  Report Type: Spontaneous
  Country: ES (occurrence: ES)
  Receive Date: 20240801
  Receipt Date: 20240801
  Transmission Date: 20241016
  Serious: Yes (Other)
  Sender: HALOZYME
  Company Number: ES-HALOZYME THERAPEUTICS, INC.-2024-ES-HYL-06770

PATIENT

DRUGS (1)
  1. HYLENEX RECOMBINANT [Suspect]
     Active Substance: HYALURONIDASE (HUMAN RECOMBINANT)
     Indication: Dermal filler overcorrection
     Route: 058

REACTIONS (2)
  - Ocular ischaemic syndrome [Not Recovered/Not Resolved]
  - Off label use [None]
